FAERS Safety Report 9674655 (Version 2)
Quarter: 2014Q2

REPORT INFORMATION
  Report Type: Spontaneous
  Country: US (occurrence: US)
  Receive Date: 20131107
  Receipt Date: 20140530
  Transmission Date: 20141212
  Serious: Yes (Hospitalization, Other)
  Sender: FDA-Public Use
  Company Number: US-BAYER-2013-133310

PATIENT
  Age: 23 Year
  Sex: Female

DRUGS (3)
  1. YASMIN [Suspect]
     Indication: CONTRACEPTION
     Dosage: UNK
     Dates: start: 20050701, end: 20050729
  2. VITAMIN C [ASCORBIC ACID] [Concomitant]
     Dosage: UNK
     Dates: start: 2010
  3. ALBUTEROL [Concomitant]
     Dosage: UNK
     Dates: start: 1985

REACTIONS (15)
  - Cerebral venous thrombosis [None]
  - Thrombotic stroke [None]
  - Generalised tonic-clonic seizure [None]
  - Deep vein thrombosis [None]
  - Thrombophlebitis superficial [None]
  - Injury [None]
  - Pain [None]
  - General physical health deterioration [None]
  - Fear of disease [None]
  - Emotional distress [None]
  - Pain [None]
  - Agraphia [None]
  - Dyscalculia [None]
  - Speech disorder [None]
  - Reading disorder [None]
